FAERS Safety Report 4751069-6 (Version None)
Quarter: 2005Q3

REPORT INFORMATION
  Report Type: 
  Country: None (occurrence: None)
  Receive Date: 20050822
  Receipt Date: 20050815
  Transmission Date: 20060218
  Serious: Yes (Life-Threatening, Hospitalization)
  Sender: FDA-Public Use
  Company Number: THQ2005A00583

PATIENT
  Sex: Female

DRUGS (4)
  1. ACTOS [Suspect]
     Indication: DIABETES MELLITUS NON-INSULIN-DEPENDENT
     Dosage: 15 MG (15 MG, 1 IN 1 D), PER ORAL
     Route: 048
     Dates: start: 20050120, end: 20050601
  2. AMARYL [Concomitant]
  3. CORODIL (ENALAPRIL) [Concomitant]
  4. SULFAMETIZOL (SULFAMETHIXOLE) [Concomitant]

REACTIONS (9)
  - ALANINE AMINOTRANSFERASE INCREASED [None]
  - BLOOD ALKALINE PHOSPHATASE INCREASED [None]
  - BLOOD LACTATE DEHYDROGENASE INCREASED [None]
  - DRUG EFFECT INCREASED [None]
  - DRUG INTERACTION [None]
  - HYPOGLYCAEMIA [None]
  - HYPONATRAEMIA [None]
  - LIVER DISORDER [None]
  - PALPITATIONS [None]
